FAERS Safety Report 8561272-5 (Version None)
Quarter: 2012Q3

REPORT INFORMATION
  Report Type: 
  Country: None (occurrence: None)
  Receive Date: 20120802
  Receipt Date: 20070611
  Transmission Date: 20120928
  Serious: Yes (Death, Hospitalization)
  Sender: FDA-Public Use
  Company Number: US-ROCHE-1095296

PATIENT
  Sex: Female

DRUGS (2)
  1. XOLAIR [Suspect]
     Indication: RHINITIS ALLERGIC
  2. XOLAIR [Suspect]
     Indication: ASTHMA

REACTIONS (3)
  - ANOXIA [None]
  - ASTHMA [None]
  - DEATH [None]
